FAERS Safety Report 11430542 (Version 3)
Quarter: 2015Q3

REPORT INFORMATION
  Report Type: Spontaneous
  Country: JP (occurrence: JP)
  Receive Date: 20150828
  Receipt Date: 20150911
  Transmission Date: 20151125
  Serious: Yes (Death, Other)
  Sender: FDA-Public Use
  Company Number: JP-ROCHE-1627495

PATIENT
  Age: 81 Year
  Sex: Male
  Weight: 39.8 kg

DRUGS (1)
  1. ACTILYSE [Suspect]
     Active Substance: ALTEPLASE
     Indication: CEREBRAL ARTERY OCCLUSION
     Route: 065

REACTIONS (6)
  - Death [Fatal]
  - Haemorrhage intracranial [Unknown]
  - Cerebral haematoma [Unknown]
  - Cerebral artery embolism [Unknown]
  - Intraventricular haemorrhage [Unknown]
  - Haemorrhagic infarction [Unknown]
